FAERS Safety Report 6500728-3 (Version None)
Quarter: 2009Q4

REPORT INFORMATION
  Report Type: 
  Country: None (occurrence: None)
  Receive Date: 20091216
  Receipt Date: 20090123
  Transmission Date: 20100525
  Serious: No
  Sender: FDA-Public Use
  Company Number: A0765041A

PATIENT
  Age: 26 Year
  Sex: Male

DRUGS (1)
  1. COMMIT [Suspect]

REACTIONS (4)
  - BLISTER [None]
  - GINGIVAL BLISTER [None]
  - MASTICATION DISORDER [None]
  - ORAL PAIN [None]
